FAERS Safety Report 9123147 (Version 1)
Quarter: 2013Q1

REPORT INFORMATION
  Report Type: Spontaneous
  Country: US (occurrence: None)
  Receive Date: 20130225
  Receipt Date: 20130225
  Transmission Date: 20140127
  Serious: Yes (Other)
  Sender: FDA-Public Use
  Company Number: None

PATIENT
  Age: 38 Year
  Sex: Female
  Weight: 65.32 kg

DRUGS (1)
  1. NORGESTIMATE/ETHINYL ESTRADIOL [Suspect]
     Indication: OVARIAN CYST
     Dosage: AS DIRECTED OD PO
     Route: 048
     Dates: start: 20130210, end: 20130222

REACTIONS (5)
  - Depression [None]
  - Breast tenderness [None]
  - Food craving [None]
  - Product quality issue [None]
  - Product substitution issue [None]
